FAERS Safety Report 7320636-8 (Version None)
Quarter: 2011Q1

REPORT INFORMATION
  Report Type: 
  Country: None (occurrence: None)
  Receive Date: 20110228
  Receipt Date: 20110217
  Transmission Date: 20110831
  Serious: Yes (Other)
  Sender: FDA-Public Use
  Company Number: US-JNJFOC-20110201065

PATIENT
  Sex: Male
  Weight: 143.34 kg

DRUGS (7)
  1. ASACOL [Concomitant]
     Route: 048
  2. IMURAN [Concomitant]
     Indication: CROHN'S DISEASE
     Route: 048
  3. INDERAL [Concomitant]
     Indication: HYPERTENSION
     Route: 048
  4. NORVASC [Concomitant]
     Indication: HYPERTENSION
     Route: 048
  5. REMICADE [Suspect]
     Indication: CROHN'S DISEASE
     Route: 042
  6. ASACOL [Concomitant]
     Indication: CROHN'S DISEASE
     Route: 048
  7. DIOVAN [Concomitant]
     Indication: HYPERTENSION
     Route: 048

REACTIONS (2)
  - WHITE BLOOD CELL COUNT DECREASED [None]
  - CHEST X-RAY ABNORMAL [None]
